FAERS Safety Report 6765812-8 (Version None)
Quarter: 2010Q2

REPORT INFORMATION
  Report Type: 
  Country: None (occurrence: None)
  Receive Date: 20100611
  Receipt Date: 20100601
  Transmission Date: 20101027
  Serious: Yes (Hospitalization)
  Sender: FDA-Public Use
  Company Number: FR-ROCHE-704543

PATIENT
  Sex: Female

DRUGS (6)
  1. MYCOPHENOLATE MOFETIL [Suspect]
     Route: 065
     Dates: start: 20051225
  2. NEORAL [Suspect]
     Route: 048
     Dates: start: 20051225, end: 20100423
  3. NEORAL [Suspect]
     Route: 048
     Dates: start: 20100426
  4. CORTANCYL [Suspect]
     Route: 065
  5. INSULATARD [Concomitant]
     Dates: start: 20060104
  6. LOXEN [Concomitant]
     Dates: start: 20070204

REACTIONS (5)
  - ACUTE CORONARY SYNDROME [None]
  - BLOOD CREATININE INCREASED [None]
  - HAEMATURIA [None]
  - RENAL FAILURE ACUTE [None]
  - SEPSIS [None]
